FAERS Safety Report 6068910-X (Version None)
Quarter: 2009Q1

REPORT INFORMATION
  Report Type: 
  Country: None (occurrence: None)
  Receive Date: 20090206
  Receipt Date: 20090128
  Transmission Date: 20090719
  Serious: Yes (Death, Life-Threatening, Hospitalization, Other)
  Sender: FDA-Public Use
  Company Number: GB-ELI_LILLY_AND_COMPANY-GB200901004889

PATIENT
  Age: 73 Year
  Sex: Male
  Weight: 127 kg

DRUGS (12)
  1. BYETTA [Suspect]
     Indication: DIABETES MELLITUS
     Dosage: 10 UG, UNKNOWN
     Route: 058
     Dates: start: 20080501
  2. AMILORIDE HYDROCHLORIDE [Concomitant]
     Dosage: 10 MG, DAILY (1/D)
     Route: 065
  3. ASPIRIN [Concomitant]
     Dosage: 75 MG, DAILY (1/D)
     Route: 065
  4. ATENOLOL [Concomitant]
     Dosage: 50 MG, DAILY (1/D)
     Route: 065
  5. AUGMENTIN '125' [Concomitant]
     Dosage: UNK, UNKNOWN
     Route: 065
  6. FLUCLOXACILLIN [Concomitant]
     Dosage: UNK, UNKNOWN
     Route: 065
  7. FUROSEMIDE [Concomitant]
     Dosage: 80 MG, DAILY (1/D)
     Route: 065
  8. GLICLAZIDE [Concomitant]
     Dosage: 160 MG, 2/D
     Route: 065
  9. METFORMIN HCL [Concomitant]
     Dosage: 850 MG, 3/D
     Route: 065
  10. ONDANSETRON HYDROCHLORIDE [Concomitant]
     Dosage: UNK, UNKNOWN
     Route: 065
  11. RAMIPRIL [Concomitant]
     Dosage: 10 MG, DAILY (1/D)
     Route: 065
  12. ZOPICLONE [Concomitant]
     Dosage: UNK, UNKNOWN
     Route: 065

REACTIONS (5)
  - BRONCHOPNEUMONIA [None]
  - DEPRESSED MOOD [None]
  - HERPES ZOSTER [None]
  - INTESTINAL OBSTRUCTION [None]
  - MOBILITY DECREASED [None]
